FAERS Safety Report 4431064-7 (Version None)
Quarter: 2004Q3

REPORT INFORMATION
  Report Type: 
  Country: None (occurrence: None)
  Receive Date: 20040818
  Receipt Date: 20040730
  Transmission Date: 20050211
  Serious: Yes (Hospitalization, Other)
  Sender: FDA-Public Use
  Company Number: USA040773042

PATIENT
  Age: 49 Year
  Sex: Male
  Weight: 127 kg

DRUGS (4)
  1. CIALIS [Suspect]
     Indication: ERECTILE DYSFUNCTION
     Dosage: 10 MG
     Dates: start: 20040709
  2. METFORMIN HCL [Concomitant]
  3. VIAGRA [Concomitant]
  4. HYZAAR [Concomitant]

REACTIONS (8)
  - ABDOMINAL PAIN UPPER [None]
  - ANXIETY [None]
  - CORONARY ARTERY OCCLUSION [None]
  - DEHYDRATION [None]
  - DIARRHOEA [None]
  - FLUSHING [None]
  - HEADACHE [None]
  - MYOCARDIAL INFARCTION [None]
